FAERS Safety Report 14699565 (Version 1)
Quarter: 2018Q1

REPORT INFORMATION
  Report Type: Spontaneous
  Country: US (occurrence: US)
  Receive Date: 20180329
  Receipt Date: 20180329
  Transmission Date: 20180509
  Serious: Yes (Other)
  Sender: FDA-Public Use
  Company Number: None

PATIENT
  Age: 37 Month
  Sex: Male
  Weight: 119.25 kg

DRUGS (2)
  1. KRATOM RED DRAGON [Suspect]
     Active Substance: MITRAGYNINE\HERBALS
     Indication: BACK PAIN
     Route: 062
     Dates: start: 20180205, end: 20180210
  2. ADVIL [Concomitant]
     Active Substance: IBUPROFEN

REACTIONS (2)
  - Abdominal discomfort [None]
  - Diarrhoea [None]

NARRATIVE: CASE EVENT DATE: 20180215
